FAERS Safety Report 8309933-7 (Version None)
Quarter: 2012Q2

REPORT INFORMATION
  Report Type: 
  Country: None (occurrence: None)
  Receive Date: 20120425
  Receipt Date: 20120417
  Transmission Date: 20120825
  Serious: Yes (Hospitalization)
  Sender: FDA-Public Use
  Company Number: FI-PFIZER INC-2012093245

PATIENT
  Sex: Male
  Weight: 98 kg

DRUGS (2)
  1. TORISEL [Suspect]
     Indication: RENAL CANCER
     Dosage: 25 MG, WEEKLY, DURATION 4 WEEKS
     Route: 042
     Dates: start: 20120306
  2. ENALAPRIL MALEATE [Interacting]
     Dosage: 10 MG, 1X/DAY
     Dates: start: 20111014, end: 20120410

REACTIONS (2)
  - DRUG INTERACTION [None]
  - ANGIOEDEMA [None]
